FAERS Safety Report 5108663-2 (Version None)
Quarter: 2006Q3

REPORT INFORMATION
  Report Type: 
  Country: None (occurrence: None)
  Receive Date: 20060915
  Receipt Date: 20060907
  Transmission Date: 20061208
  Serious: Yes (Hospitalization, Other)
  Sender: FDA-Public Use
  Company Number: GXKR2006CA05491

PATIENT
  Age: 19 Year
  Sex: Female

DRUGS (4)
  1. VENLAFAXINE (NGX) (VENLAFAXINE) [Suspect]
     Indication: POSTPARTUM DEPRESSION
     Dosage: 150 MG, QD
  2. ACETAMINOPHEN [Suspect]
  3. ZOPICLONE [Concomitant]
  4. QUETIAPINE [Concomitant]

REACTIONS (4)
  - BIPOLAR II DISORDER [None]
  - BRIEF PSYCHOTIC DISORDER, WITH POSTPARTUM ONSET [None]
  - INSOMNIA [None]
  - INTENTIONAL OVERDOSE [None]
